FAERS Safety Report 4984273-2 (Version None)
Quarter: 2006Q2

REPORT INFORMATION
  Report Type: 
  Country: None (occurrence: None)
  Receive Date: 20060420
  Receipt Date: 20060404
  Transmission Date: 20061013
  Serious: Yes (Other)
  Sender: FDA-Public Use
  Company Number: 8016153

PATIENT

DRUGS (1)
  1. KEPPRA [Suspect]
     Indication: EPILEPSY
     Dates: end: 20060330

REACTIONS (1)
  - PANCYTOPENIA [None]
